FAERS Safety Report 8908354 (Version 1)
Quarter: 2012Q4

REPORT INFORMATION
  Report Type: 
  Country: US (occurrence: US)
  Receive Date: 20121114
  Receipt Date: 20121114
  Transmission Date: 20130627
  Serious: No
  Sender: FDA-Public Use
  Company Number: US-PFIZER INC-2012283962

PATIENT
  Age: 78 Year
  Sex: Male
  Weight: 72.56 kg

DRUGS (3)
  1. CHANTIX [Suspect]
     Indication: SMOKING CESSATION THERAPY
     Dosage: 1 mg, 2x/day
     Route: 048
     Dates: start: 20121111
  2. FLURAZEPAM [Suspect]
     Indication: INSOMNIA
     Dosage: UNK
  3. EXFORGE [Concomitant]
     Indication: BLOOD PRESSURE HIGH
     Dosage: UNK, daily at night

REACTIONS (2)
  - Drug ineffective [Unknown]
  - Insomnia [Unknown]
